FAERS Safety Report 10032319 (Version 2)
Quarter: 2014Q2

REPORT INFORMATION
  Report Type: Spontaneous
  Country: IT (occurrence: IT)
  Receive Date: 20140324
  Receipt Date: 20140402
  Transmission Date: 20141212
  Serious: Yes (Other)
  Sender: FDA-Public Use
  Company Number: IT-PFIZER INC-2014080095

PATIENT
  Age: 63 Year
  Sex: Male

DRUGS (5)
  1. IRINOTECAN HCL [Suspect]
     Indication: COLON CANCER METASTATIC
     Dosage: 360 MG, CYCLIC
     Route: 042
     Dates: start: 20130422, end: 20130919
  2. AVASTIN [Suspect]
     Dosage: 490 MG, CYCLIC
     Route: 042
     Dates: start: 20130422, end: 20130528
  3. FLUOROURACIL [Suspect]
     Indication: COLON CANCER METASTATIC
     Dosage: 800 MG, CYCLIC
     Route: 040
     Dates: start: 20130424, end: 20130912
  4. FLUOROURACIL [Suspect]
     Dosage: 4800 MG, CYCLIC
     Route: 041
     Dates: start: 20130422, end: 20130912
  5. FOLINIC ACID [Concomitant]
     Dosage: 400 MG, UNK
     Route: 042
     Dates: start: 20130422, end: 20130912

REACTIONS (2)
  - Infected skin ulcer [Recovering/Resolving]
  - Skin discolouration [Recovering/Resolving]
